FAERS Safety Report 7165118-1 (Version None)
Quarter: 2010Q4

REPORT INFORMATION
  Report Type: 
  Country: None (occurrence: None)
  Receive Date: 20101215
  Receipt Date: 20091217
  Transmission Date: 20110411
  Serious: No
  Sender: FDA-Public Use
  Company Number: US-AMGEN-TCS381248

PATIENT

DRUGS (1)
  1. ENBREL [Suspect]
     Indication: RHEUMATOID ARTHRITIS
     Dosage: UNK UNK, UNK
     Dates: start: 20060403

REACTIONS (4)
  - EAR INFECTION [None]
  - EYE INFECTION [None]
  - FUNGAL INFECTION [None]
  - VULVOVAGINAL PRURITUS [None]
